FAERS Safety Report 8624086-3 (Version None)
Quarter: 2012Q3

REPORT INFORMATION
  Report Type: 
  Country: None (occurrence: None)
  Receive Date: 20120827
  Receipt Date: 20120824
  Transmission Date: 20120928
  Serious: Yes (Life-Threatening, Hospitalization)
  Sender: FDA-Public Use
  Company Number: AU-B.I. PHARMACEUTICALS,INC./RIDGEFIELD-2012-AU-01367AU

PATIENT
  Sex: Male
  Weight: 70 kg

DRUGS (11)
  1. ALLOPURINOL [Concomitant]
     Dosage: 150 MG
     Route: 048
  2. DIGOXIN [Concomitant]
     Dosage: 62.5 MCG
     Route: 048
  3. FUROSEMIDE [Concomitant]
     Indication: OEDEMA PERIPHERAL
     Dosage: 40 MG
     Route: 048
  4. LIPITOR [Concomitant]
     Indication: HYPERCHOLESTEROLAEMIA
     Dosage: 20 MG
     Route: 048
  5. PRADAXA [Suspect]
     Indication: ATRIAL FIBRILLATION
     Dosage: 220 MG
     Dates: start: 20110711, end: 20120715
  6. PANTOPRAZOLE [Concomitant]
     Indication: GASTROOESOPHAGEAL REFLUX DISEASE
     Dosage: 40 MG
     Route: 048
  7. SPIRONOLACTONE [Concomitant]
     Indication: CARDIAC FAILURE CONGESTIVE
     Dosage: 25 MG
     Route: 048
  8. SPIRIVA [Concomitant]
     Indication: CHRONIC OBSTRUCTIVE PULMONARY DISEASE
     Dosage: 18 MCG
     Route: 055
  9. CHOLECALCIFEROL [Concomitant]
     Route: 048
  10. CALTRATE VITAMIN D [Concomitant]
     Dosage: 1000 U
     Route: 048
  11. ACETAMINOPHEN [Concomitant]
     Dosage: 2660 MG
     Route: 048

REACTIONS (6)
  - NAUSEA [None]
  - RENAL IMPAIRMENT [None]
  - ABDOMINAL PAIN [None]
  - MELAENA [None]
  - DECREASED APPETITE [None]
  - RECTAL HAEMORRHAGE [None]
